FAERS Safety Report 5201591-3 (Version None)
Quarter: 2006Q4

REPORT INFORMATION
  Report Type: 
  Country: None (occurrence: None)
  Receive Date: 20061006
  Receipt Date: 20060116
  Transmission Date: 20070319
  Serious: Yes (Other)
  Sender: FDA-Public Use
  Company Number: 200610027BWH

PATIENT
  Age: 85 Year
  Sex: Female
  Weight: 68.4932 kg

DRUGS (16)
  1. CIPRO [Suspect]
     Indication: URINARY TRACT INFECTION
     Dates: start: 20050630
  2. PROCRIT [Suspect]
     Indication: ANAEMIA OF MALIGNANT DISEASE
     Dosage: 40000 IU , ONCE
     Dates: start: 20050623
  3. PROCRIT [Suspect]
     Indication: ANAEMIA OF MALIGNANT DISEASE
     Dosage: 40000 IU , ONCE
     Dates: start: 20050629
  4. SYNTHROID [Concomitant]
  5. LOTREL [Concomitant]
  6. LANOXIN [Concomitant]
  7. PREMARIN [Concomitant]
  8. PREDNISONE [Concomitant]
  9. COUMADIN [Concomitant]
  10. TOPROL-XL [Concomitant]
  11. LORAZEPAM [Concomitant]
  12. DEMADEX [Concomitant]
  13. FLEXTRA-DS [Concomitant]
  14. CLONIDINE [Concomitant]
  15. NEURONTIN [Concomitant]
  16. PERCOGESIC [Concomitant]

REACTIONS (1)
  - CONVULSION [None]
